FAERS Safety Report 11975902 (Version 1)
Quarter: 2016Q1

REPORT INFORMATION
  Report Type: Spontaneous
  Country: US (occurrence: US)
  Receive Date: 20160129
  Receipt Date: 20160129
  Transmission Date: 20160526
  Serious: Yes (Other)
  Sender: FDA-Public Use
  Company Number: US-TEVA-623277USA

PATIENT
  Sex: Female

DRUGS (1)
  1. NITROFURANTOIN (MACROCRYSTALS) [Suspect]
     Active Substance: NITROFURANTOIN
     Route: 065

REACTIONS (2)
  - Anaphylactic reaction [Unknown]
  - Pulmonary fibrosis [Unknown]
